FAERS Safety Report 8781138 (Version 2)
Quarter: 2012Q4

REPORT INFORMATION
  Report Type: Report from Study
  Country: DE (occurrence: DE)
  Receive Date: 20120913
  Receipt Date: 20121115
  Transmission Date: 20130627
  Serious: Yes (Death, Other)
  Sender: FDA-Public Use
  Company Number: DE-ROCHE-1064208

PATIENT
  Age: 63 Year
  Sex: Female
  Weight: 57 kg

DRUGS (14)
  1. BEVACIZUMAB [Suspect]
     Indication: NON-SMALL CELL LUNG CANCER
     Route: 042
     Dates: start: 20120228, end: 20120320
  2. CISPLATIN [Concomitant]
     Indication: NON-SMALL CELL LUNG CANCER
     Route: 042
     Dates: start: 20120228, end: 20120405
  3. PEMETREXED [Concomitant]
     Indication: NON-SMALL CELL LUNG CANCER
     Route: 042
     Dates: start: 20120228, end: 20120405
  4. FENTANYL PATCH [Concomitant]
     Route: 062
  5. ASS100 [Concomitant]
     Route: 048
  6. BISOPROLOL [Concomitant]
     Route: 048
  7. FOLIC ACID [Concomitant]
     Route: 048
  8. OMEPRAZOL [Concomitant]
     Route: 048
  9. KALIUM RETARD [Concomitant]
     Route: 048
  10. SYMBICORT [Concomitant]
     Route: 055
  11. DEXAMETHASON [Concomitant]
     Route: 042
  12. GRANISETRON [Concomitant]
     Dosage: 1 df
     Route: 042
  13. SEVREDOL [Concomitant]
     Route: 065
  14. IBU [Concomitant]
     Dosage: 600 mg
     Route: 065

REACTIONS (2)
  - Haemoptysis [Fatal]
  - Neoplasm progression [Unknown]
